FAERS Safety Report 6244756-4 (Version None)
Quarter: 2009Q2

REPORT INFORMATION
  Report Type: 
  Country: None (occurrence: None)
  Receive Date: 20090625
  Receipt Date: 20090622
  Transmission Date: 20091009
  Serious: Yes (Life-Threatening, Hospitalization, Other)
  Sender: FDA-Public Use
  Company Number: DE-WYE-H09824809

PATIENT
  Sex: Male

DRUGS (69)
  1. SIROLIMUS [Suspect]
     Indication: PROPHYLAXIS AGAINST TRANSPLANT REJECTION
  2. PREDNISOLONE SODIUM SUCCINATE INJ [Suspect]
     Indication: PROPHYLAXIS AGAINST TRANSPLANT REJECTION
     Dosage: 3 SINGLE DOSES (250 MG)
     Route: 042
     Dates: start: 20030430, end: 20030430
  3. PREDNISOLONE SODIUM SUCCINATE INJ [Suspect]
     Dosage: SINGLE DOSE (250 MG)
     Route: 042
     Dates: start: 20030501, end: 20030501
  4. PREDNISOLONE SODIUM SUCCINATE INJ [Suspect]
     Dosage: 250 MG
     Dates: start: 20030516, end: 20030516
  5. PREDNISOLONE SODIUM SUCCINATE INJ [Suspect]
     Dosage: 100 MG
     Route: 042
     Dates: start: 20031029, end: 20031029
  6. MYCOPHENOLATE MOFETIL [Suspect]
     Indication: PROPHYLAXIS AGAINST TRANSPLANT REJECTION
     Route: 048
     Dates: start: 20030430, end: 20030101
  7. MYCOPHENOLATE MOFETIL [Suspect]
     Dosage: NOT PROVIDED
     Dates: start: 20030101, end: 20031117
  8. MYCOPHENOLATE MOFETIL [Suspect]
     Dosage: 250 MG
     Dates: start: 20031118, end: 20031118
  9. MYCOPHENOLATE MOFETIL [Suspect]
     Dates: start: 20031125, end: 20031127
  10. MYCOPHENOLATE MOFETIL [Suspect]
     Dates: start: 20031128, end: 20031204
  11. MYCOPHENOLATE MOFETIL [Suspect]
     Dates: start: 20031205
  12. TACROLIMUS [Suspect]
     Indication: PROPHYLAXIS AGAINST TRANSPLANT REJECTION
     Route: 048
     Dates: start: 20030430, end: 20030430
  13. TACROLIMUS [Suspect]
     Dosage: VARIABLE DOSES
     Dates: start: 20030504
  14. DECORTIN-H [Suspect]
     Indication: PROPHYLAXIS AGAINST TRANSPLANT REJECTION
     Dosage: 75 MG
     Route: 048
     Dates: start: 20030501, end: 20030501
  15. DECORTIN-H [Suspect]
     Dosage: 2 SINGLE DOSES (50 MG)
     Dates: start: 20030502, end: 20030502
  16. DECORTIN-H [Suspect]
     Dates: start: 20030503
  17. CYCLOSPORINE [Suspect]
     Indication: PROPHYLAXIS AGAINST TRANSPLANT REJECTION
  18. PANTOZOL [Concomitant]
     Dosage: NOT PROVIDED
     Dates: start: 20030501
  19. AMPHOTERICIN B [Concomitant]
     Dosage: NOT PROVIDED
     Dates: start: 20030501, end: 20030916
  20. VIGANTOLETTEN [Concomitant]
     Dosage: NOT PROVIDED
     Dates: end: 20031024
  21. NYSTATIN [Concomitant]
     Dosage: NOT PROVIDED
  22. ASPIRIN [Concomitant]
     Dosage: NOT PROVIDED
     Dates: start: 20031020
  23. CALCIUM [Concomitant]
     Dosage: NOT PROVIDED
  24. CARBAMAZEPINE [Concomitant]
     Dosage: NOT PROVIDED
     Dates: start: 20031001, end: 20031119
  25. ACYCLOVIR [Concomitant]
     Dosage: NOT PROVIDED
     Dates: start: 20031024, end: 20031107
  26. DELIX [Concomitant]
  27. CLONIDINE HCL [Concomitant]
     Dosage: NOT PROVIDED
     Dates: start: 20030916
  28. NEPRESOL [Concomitant]
  29. ISOSORBIDE DINITRATE [Concomitant]
     Dosage: NOT PROVIDED
  30. KALINOR-BRAUSETABLETTEN [Concomitant]
  31. BERODUAL [Concomitant]
     Dosage: NOT PROVIDED
     Dates: start: 20031025, end: 20031110
  32. MOXONIDINE [Concomitant]
     Dosage: NOT PROVIDED
     Dates: end: 20031029
  33. ACTRAPID INSULIN NOVO [Concomitant]
     Dosage: NOT PROVIDED
     Dates: start: 20030501
  34. AMLODIPINE [Concomitant]
     Dosage: NOT PROVIDED
     Dates: start: 20030312, end: 20031205
  35. ATROVENT [Concomitant]
     Dosage: NOT PROVIDED
     Dates: start: 20030922, end: 20031118
  36. DILATREND [Concomitant]
     Dosage: NOT PROVIDED
     Dates: start: 20030430, end: 20040201
  37. CEFOTIAM HYDROCHLORIDE [Concomitant]
     Dosage: NOT PROVIDED
     Dates: start: 20031118, end: 20031120
  38. CEFOTIAM HYDROCHLORIDE [Concomitant]
     Dosage: NOT PROVIDED
     Dates: start: 20031118, end: 20031120
  39. CIPROBAY [Concomitant]
     Dosage: NOT PROVIDED
     Dates: start: 20031127, end: 20031203
  40. CLOPIDOGREL [Concomitant]
     Dosage: NOT PROVIDED
     Dates: start: 20031107, end: 20031112
  41. FLUVASTATIN [Concomitant]
     Dosage: NOT PROVIDED
     Dates: start: 20031113
  42. LASIX [Concomitant]
     Dosage: NOT PROVIDED
     Dates: start: 20030313
  43. FUROSEMIDE INTENSOL [Concomitant]
     Dosage: NOT PROVIDED
     Dates: start: 20030917, end: 20031001
  44. CYMEVAN [Concomitant]
     Dosage: NOT PROVIDED
     Dates: start: 20030501, end: 20030730
  45. LIQUAEMIN SODIUM [Concomitant]
     Dosage: NOT PROVIDED
     Dates: start: 20030503, end: 20030601
  46. HYDROCHLOROTHIAZIDE [Concomitant]
     Dosage: NOT PROVIDED
     Dates: start: 20031001, end: 20031110
  47. ISOSORBIDE DINITRATE [Concomitant]
     Dosage: NOT PROVIDED
     Dates: start: 20031104, end: 20031204
  48. CORVATON - SLOW RELEASE ^HOECHST^ [Concomitant]
     Dosage: NOT PROVIDED
     Dates: start: 20031107, end: 20031205
  49. MOXONIDINE [Concomitant]
     Dosage: NOT PROVIDED
     Dates: start: 20031001, end: 20031030
  50. NEORECORMON [Concomitant]
     Dosage: NOT PROVIDED
     Dates: start: 20030503, end: 20031107
  51. BAYOTENSIN [Concomitant]
     Dosage: NOT PROVIDED
     Dates: start: 20030512, end: 20030518
  52. PRAVASTATIN SODIUM [Concomitant]
     Dosage: NOT PROVIDED
     Dates: start: 20030501, end: 20031107
  53. MINIPRESS [Concomitant]
     Dosage: NOT PROVIDED
     Dates: start: 20031030, end: 20031115
  54. PROTAPHAN [Concomitant]
     Dosage: NOT PROVIDED
     Dates: start: 20030620
  55. ACTONEL [Concomitant]
     Dosage: NOT PROVIDED
     Dates: start: 20030501, end: 20031001
  56. SULTANOL [Concomitant]
     Dosage: NOT PROVIDED
     Dates: start: 20031025, end: 20031118
  57. TAZOBACTAM [Concomitant]
     Dosage: NOT PROVIDED
     Dates: start: 20031024, end: 20031107
  58. PIPERACILLIN [Concomitant]
     Dosage: NOT PROVIDED
     Dates: start: 20031024, end: 20031107
  59. AMPICILLIN AND SULBACTAM [Concomitant]
     Dosage: NOT PROVIDED
     Dates: start: 20030430, end: 20030430
  60. VANCOMYCIN [Concomitant]
     Dosage: NOT PROVIDED
     Dates: start: 20031119, end: 20031121
  61. PRIMAXIN [Concomitant]
     Dosage: NOT PROVIDED
     Dates: start: 20031119, end: 20031127
  62. ROCALTROL [Concomitant]
     Dosage: NOT PROVIDED
     Dates: start: 20030501
  63. SPASMEX [Concomitant]
     Dosage: NOT PROVIDED
     Dates: start: 20030501, end: 20030503
  64. ACTRAPID HUMAN [Concomitant]
     Dosage: NOT PROVIDED
     Dates: start: 20030502, end: 20030728
  65. CALCET [Concomitant]
     Dosage: NOT PROVIDED
     Dates: start: 20030515, end: 20030516
  66. DACLIZUMAB [Concomitant]
     Indication: PROPHYLAXIS AGAINST TRANSPLANT REJECTION
     Dosage: 150 MG
     Route: 042
     Dates: start: 20030430, end: 20030430
  67. DACLIZUMAB [Concomitant]
     Dosage: 80 MG
     Dates: start: 20030513, end: 20030513
  68. DACLIZUMAB [Concomitant]
     Dosage: 76 MG
     Dates: start: 20030527, end: 20030527
  69. DACLIZUMAB [Concomitant]
     Dates: start: 20030610, end: 20030625

REACTIONS (17)
  - ANGINA PECTORIS [None]
  - ANGINA UNSTABLE [None]
  - CARDIAC FAILURE [None]
  - CELLULITIS [None]
  - CHRONIC ALLOGRAFT NEPHROPATHY [None]
  - CONDITION AGGRAVATED [None]
  - DIABETES MELLITUS [None]
  - FEMORAL NECK FRACTURE [None]
  - FLUID RETENTION [None]
  - HERPES ZOSTER [None]
  - HYPERTENSION [None]
  - MYOCARDIAL INFARCTION [None]
  - PERITONEAL HERNIA [None]
  - RENAL ARTERY STENOSIS [None]
  - RENAL FAILURE [None]
  - TRANSPLANT REJECTION [None]
  - URINARY TRACT INFECTION ENTEROCOCCAL [None]
